FAERS Safety Report 9282094 (Version 1)
Quarter: 2013Q2

REPORT INFORMATION
  Report Type: Spontaneous
  Country: AU (occurrence: AU)
  Receive Date: 20130510
  Receipt Date: 20130510
  Transmission Date: 20140414
  Serious: Yes (Hospitalization, Other)
  Sender: FDA-Public Use
  Company Number: AU-009507513-1305AUS003297

PATIENT
  Age: 60 Year
  Sex: Male

DRUGS (6)
  1. JANUMET 50 MG/500 MG [Suspect]
     Dosage: 1 DF, QD
     Route: 048
     Dates: start: 20110307, end: 20110607
  2. ASPIRIN [Concomitant]
     Dosage: 100 MG, QD
     Route: 048
  3. ATORVASTATIN [Concomitant]
     Dosage: 80 MG, QD
     Route: 048
  4. FUROSEMIDE [Concomitant]
     Dosage: 40 MG, QD
     Route: 048
     Dates: start: 20110607
  5. PANTOPRAZOLE [Concomitant]
     Dosage: 40 MG, QD
     Route: 048
  6. SERTRALINE HYDROCHLORIDE [Concomitant]
     Dosage: 100 MG, QD
     Route: 048

REACTIONS (5)
  - Angioedema [Recovered/Resolved]
  - Ejection fraction decreased [Recovered/Resolved]
  - Hepatitis [Recovered/Resolved]
  - Presyncope [Recovered/Resolved]
  - Rash [None]
